FAERS Safety Report 9088324 (Version 4)
Quarter: 2013Q3

REPORT INFORMATION
  Report Type: Spontaneous
  Country: US (occurrence: US)
  Receive Date: 20130201
  Receipt Date: 20130925
  Transmission Date: 20140515
  Serious: Yes (Hospitalization)
  Sender: FDA-Public Use
  Company Number: US-B.I. PHARMACEUTICALS,INC./RIDGEFIELD-2013-BI-02258BP

PATIENT
  Age: 83 Year
  Sex: Female
  Weight: 108.86 kg

DRUGS (25)
  1. PRADAXA [Suspect]
     Indication: ANTICOAGULANT THERAPY
     Dosage: 150 MG
     Route: 048
     Dates: start: 20120409, end: 20120603
  2. LASIX [Concomitant]
     Dates: start: 20070314, end: 201303
  3. PROAIR HFA INHALER [Concomitant]
     Route: 055
  4. DIOVAN [Concomitant]
     Dates: start: 20110128, end: 20120409
  5. ALBUTEROL [Concomitant]
     Dates: start: 20091216, end: 20120603
  6. ZOCOR [Concomitant]
     Dates: start: 20081107, end: 20120603
  7. GLYBURIDE [Concomitant]
  8. AMLODIPINE BESYLATE [Concomitant]
     Dates: start: 20050803, end: 20121024
  9. DILTIAZEM CR [Concomitant]
     Dates: start: 20120229, end: 20121024
  10. SYNTHROID [Concomitant]
     Dates: start: 20060524, end: 201303
  11. GLIMEPIRIDE (AMARYL) [Concomitant]
  12. KLOR-CON [Concomitant]
     Dates: start: 20060906, end: 20120718
  13. ADCIRCA [Concomitant]
     Dates: start: 20100216, end: 20121121
  14. PROTONIX (PANTOPRAZOLE SD DR) [Concomitant]
     Dates: start: 20111109, end: 20120524
  15. CALCITRIOL [Concomitant]
     Dates: start: 20111017, end: 20120524
  16. SINGULAIR [Concomitant]
     Dates: start: 20100419, end: 20120925
  17. XALANTAN (LATANOPROST) EYE DROPS [Concomitant]
  18. ALPHAGAN P. (BRIMONIDINE) [Concomitant]
  19. ADVAIR [Concomitant]
  20. TRAMDOL HCL [Concomitant]
     Indication: ABDOMINAL PAIN UPPER
  21. XANAX [Concomitant]
     Indication: ANXIETY
     Dates: start: 20080410, end: 20130109
  22. MOBIC [Concomitant]
     Dates: start: 20060524, end: 20120810
  23. NASONEX [Concomitant]
     Dates: start: 20090209, end: 20130407
  24. FERROUS SULFATE [Concomitant]
     Dates: start: 20111109, end: 20120524
  25. PATANASE [Concomitant]
     Dates: start: 20110502, end: 20120524

REACTIONS (3)
  - Gastrointestinal haemorrhage [Unknown]
  - Rectal haemorrhage [Unknown]
  - Renal failure acute [Unknown]
